FAERS Safety Report 9049972 (Version 1)
Quarter: 2013Q1

REPORT INFORMATION
  Report Type: Spontaneous
  Country: US (occurrence: US)
  Receive Date: 20130205
  Receipt Date: 20130205
  Transmission Date: 20140127
  Serious: Yes (Disabling)
  Sender: FDA-Public Use
  Company Number: US-ELI_LILLY_AND_COMPANY-US201301009088

PATIENT
  Sex: Female

DRUGS (4)
  1. HUMULIN 30% REGULAR, 70% NPH [Suspect]
     Indication: TYPE 2 DIABETES MELLITUS
     Dosage: 68 U, EACH MORNING
     Dates: start: 201101
  2. HUMULIN 30% REGULAR, 70% NPH [Suspect]
     Dosage: 60 U, EACH EVENING
     Dates: start: 201101
  3. JANUVIA [Concomitant]
  4. GLYBURIDE [Concomitant]

REACTIONS (7)
  - Bone disorder [Not Recovered/Not Resolved]
  - Arthropathy [Not Recovered/Not Resolved]
  - Pain [Unknown]
  - Weight increased [Not Recovered/Not Resolved]
  - Memory impairment [Unknown]
  - Injection site pain [Unknown]
  - Injection site erythema [Unknown]
